FAERS Safety Report 14998899 (Version 1)
Quarter: 2018Q2

REPORT INFORMATION
  Report Type: Spontaneous
  Country: DE (occurrence: DE)
  Receive Date: 20180612
  Receipt Date: 20180612
  Transmission Date: 20180711
  Serious: Yes (Hospitalization)
  Sender: FDA-Public Use
  Company Number: DE-TEVA-2018-DE-903953

PATIENT
  Age: 63 Year
  Sex: Male

DRUGS (10)
  1. TRAMADOL. [Concomitant]
     Active Substance: TRAMADOL
     Dosage: NEED
     Route: 065
  2. SIMVASTATIN. [Concomitant]
     Active Substance: SIMVASTATIN
     Dosage: 0-0-1-0
  3. EXFORGE HCT 10MG/160MG/25MG [Concomitant]
     Dosage: 160|10|25 MG, 1-0-1-0
  4. TROSPIUM [Concomitant]
     Active Substance: TROSPIUM
     Dosage: 1-0-1-0
  5. PANTOPRAZOL [Concomitant]
     Active Substance: PANTOPRAZOLE SODIUM
     Dosage: 1-0-0-0
  6. MELOXICAM. [Suspect]
     Active Substance: MELOXICAM
     Dosage: NEED
     Route: 065
  7. MOXONIDIN [Concomitant]
     Active Substance: MOXONIDINE
     Dosage: 1-0-0-0
     Route: 065
  8. ACETYLSALICYLSAEURE [Concomitant]
     Active Substance: ASPIRIN
     Dosage: 0-1-0-0
     Route: 065
  9. VALPROINSAEURE [Concomitant]
     Active Substance: VALPROIC ACID
     Dosage: 1-0-1-0
  10. AMLODIPIN [Concomitant]
     Active Substance: AMLODIPINE BESYLATE
     Dosage: 0-0-1-0

REACTIONS (1)
  - Vision blurred [Unknown]

NARRATIVE: CASE EVENT DATE: 20160329
